FAERS Safety Report 4562523-4 (Version None)
Quarter: 2005Q1

REPORT INFORMATION
  Report Type: 
  Country: None (occurrence: None)
  Receive Date: 20050124
  Receipt Date: 20050110
  Transmission Date: 20050727
  Serious: Yes (Other)
  Sender: FDA-Public Use
  Company Number: 2005011222

PATIENT
  Age: 69 Year
  Sex: Female
  Weight: 61.6892 kg

DRUGS (2)
  1. ROGAINE [Suspect]
     Indication: ALOPECIA
     Dosage: 1 ML BID, TOPICAL
     Route: 061
     Dates: end: 20040701
  2. ANTINEOPLASTIC AGENTS (ANTINEOPLASTIC AGENTS) [Suspect]
     Indication: OVARIAN CANCER
     Dates: start: 20040101

REACTIONS (1)
  - OVARIAN CANCER [None]
